FAERS Safety Report 17912987 (Version 1)
Quarter: 2020Q2

REPORT INFORMATION
  Report Type: Report from Study
  Country: US (occurrence: US)
  Receive Date: 20200618
  Receipt Date: 20200618
  Transmission Date: 20200714
  Serious: Yes (Hospitalization, Other)
  Sender: FDA-Public Use
  Company Number: US-GLAXOSMITHKLINE-US2020GSK098683

PATIENT
  Age: 20 Year
  Sex: Female

DRUGS (2)
  1. PREDNISONE. [Suspect]
     Active Substance: PREDNISONE
     Indication: RESPIRATORY SYNCYTIAL VIRUS INFECTION
     Dosage: UNK
  2. SALBUTAMOL SULPHATE [Suspect]
     Active Substance: ALBUTEROL SULFATE
     Indication: RESPIRATORY SYNCYTIAL VIRUS INFECTION
     Dosage: UNK

REACTIONS (7)
  - Exposure during pregnancy [Unknown]
  - Condition aggravated [Recovering/Resolving]
  - Oedema [Recovering/Resolving]
  - Wheezing [Recovering/Resolving]
  - Dyspnoea [Recovering/Resolving]
  - Live birth [Unknown]
  - Acute respiratory failure [Recovering/Resolving]
